FAERS Safety Report 16259925 (Version 1)
Quarter: 2019Q2

REPORT INFORMATION
  Report Type: Spontaneous
  Country: DE (occurrence: DE)
  Receive Date: 20190501
  Receipt Date: 20190501
  Transmission Date: 20190711
  Serious: Yes (Other)
  Sender: FDA-Public Use
  Company Number: DE-TORRENT-00013918

PATIENT
  Sex: Female

DRUGS (1)
  1. LEVOFLOXACIN. [Suspect]
     Active Substance: LEVOFLOXACIN
     Indication: PRODUCT USED FOR UNKNOWN INDICATION
     Dosage: UNKNOWN
     Route: 048
     Dates: start: 20180809

REACTIONS (6)
  - Tendon rupture [Unknown]
  - Sleep disorder [Unknown]
  - Muscle injury [Unknown]
  - Gait disturbance [Unknown]
  - Alopecia [Unknown]
  - Nerve injury [Unknown]
